FAERS Safety Report 4547058-7 (Version None)
Quarter: 2005Q1

REPORT INFORMATION
  Report Type: 
  Country: None (occurrence: None)
  Receive Date: 20050107
  Receipt Date: 20041109
  Transmission Date: 20050727
  Serious: Yes (Other)
  Sender: FDA-Public Use
  Company Number: PHEH2004US12112

PATIENT
  Age: 83 Year
  Sex: Female

DRUGS (7)
  1. HYTRIN [Concomitant]
     Dosage: 4 MG, BID
  2. HYDRALAZINE [Concomitant]
     Dosage: 25 MG, QD
  3. PRAZOSIN HCL [Concomitant]
     Dosage: 1 MG, QHS
  4. TENORMIN [Concomitant]
  5. DIOVAN [Suspect]
     Dosage: 160 MG, BID
     Route: 048
     Dates: start: 20041001
  6. DIOVAN [Suspect]
     Dosage: 320 MG, BID
     Dates: start: 20040101, end: 20040101
  7. DIOVAN [Suspect]
     Dosage: 160 MG, BID

REACTIONS (11)
  - AORTIC ANEURYSM [None]
  - ASTHENIA [None]
  - BIOPSY SKIN [None]
  - BLOOD PRESSURE INCREASED [None]
  - DIZZINESS [None]
  - ERYTHEMA [None]
  - EXTRASYSTOLES [None]
  - HEART RATE INCREASED [None]
  - HEART RATE IRREGULAR [None]
  - PRECANCEROUS SKIN LESION [None]
  - SKIN DISORDER [None]
